FAERS Safety Report 4443215-9 (Version None)
Quarter: 2004Q3

REPORT INFORMATION
  Report Type: 
  Country: None (occurrence: None)
  Receive Date: 20040908
  Receipt Date: 20040827
  Transmission Date: 20050211
  Serious: Yes (Other)
  Sender: FDA-Public Use
  Company Number: GB-JNJFOC-20040809230

PATIENT
  Age: 18 Year
  Sex: Male

DRUGS (1)
  1. TOPAMAX [Suspect]
     Indication: EPILEPSY

REACTIONS (6)
  - CIRCULATORY COLLAPSE [None]
  - HALLUCINATION [None]
  - MEMORY IMPAIRMENT [None]
  - MORBID THOUGHTS [None]
  - MYOCARDIAL INFARCTION [None]
  - PANIC ATTACK [None]
